FAERS Safety Report 12674557 (Version 1)
Quarter: 2016Q3

REPORT INFORMATION
  Report Type: Spontaneous
  Country: US (occurrence: US)
  Receive Date: 20160822
  Receipt Date: 20160822
  Transmission Date: 20161109
  Serious: No
  Sender: FDA-Public Use
  Company Number: US-RB-079566-15

PATIENT
  Sex: Male

DRUGS (1)
  1. MUCINEX D [Suspect]
     Active Substance: GUAIFENESIN\PSEUDOEPHEDRINE HYDROCHLORIDE
     Indication: PRODUCT USED FOR UNKNOWN INDICATION
     Dosage: 600MG. ,QD
     Route: 065
     Dates: start: 20150804

REACTIONS (2)
  - Restlessness [Unknown]
  - Insomnia [Unknown]

NARRATIVE: CASE EVENT DATE: 20150804
